FAERS Safety Report 19123003 (Version 1)
Quarter: 2021Q2

REPORT INFORMATION
  Report Type: Spontaneous
  Country: JP (occurrence: JP)
  Receive Date: 20210412
  Receipt Date: 20210412
  Transmission Date: 20210717
  Serious: Yes (Life-Threatening, Other)
  Sender: FDA-Public Use
  Company Number: JP-EXELA PHARMA SCIENCES, LLC-2021EXL00006

PATIENT
  Age: 36 Year
  Sex: Female

DRUGS (4)
  1. MAGNESIUM SULFATE. [Suspect]
     Active Substance: MAGNESIUM SULFATE
     Indication: PREMATURE LABOUR
     Route: 042
  2. NIFEDIPINE. [Suspect]
     Active Substance: NIFEDIPINE
     Indication: PREMATURE LABOUR
     Route: 048
  3. RITODRINE HYDROCHLORIDE [Suspect]
     Active Substance: RITODRINE HYDROCHLORIDE
     Indication: PREMATURE LABOUR
     Route: 042
  4. BETAMETHASONE. [Suspect]
     Active Substance: BETAMETHASONE
     Indication: FOETAL DISORDER
     Route: 065

REACTIONS (2)
  - Respiratory failure [Recovered/Resolved]
  - Pulmonary oedema [Recovered/Resolved]
